FAERS Safety Report 9700057 (Version 3)
Quarter: 2013Q4

REPORT INFORMATION
  Report Type: Report from Study
  Country: JP (occurrence: JP)
  Receive Date: 20131121
  Receipt Date: 20131203
  Transmission Date: 20140711
  Serious: Yes (Other)
  Sender: FDA-Public Use
  Company Number: JP-009507513-1305JPN006147

PATIENT
  Age: 39 Year
  Sex: Female
  Weight: 46 kg

DRUGS (8)
  1. GANIRELIX ACETATE [Suspect]
     Indication: PREVENTION OF PREMATURE OVULATION
     Dosage: 0.25 MG, QD
     Route: 058
     Dates: start: 20100613, end: 20100615
  2. PREGNYL 5000IU [Suspect]
     Indication: OVULATION INDUCTION
     Dosage: 10 THOUSAND-MILLION UNIT, ONCE
     Route: 030
     Dates: start: 20100615, end: 20100615
  3. PROGESTON [Concomitant]
     Indication: IN VITRO FERTILISATION
     Dosage: 75 MG, QD
     Route: 030
     Dates: start: 20100629, end: 20100711
  4. ESTRANA [Concomitant]
     Indication: IN VITRO FERTILISATION
     Dosage: 1 DF, QD
     Route: 062
     Dates: start: 20100622, end: 20100721
  5. PROGE DEPOT [Concomitant]
     Indication: IN VITRO FERTILISATION
     Dosage: 125 MG, QD
     Route: 030
     Dates: start: 20100712, end: 20100719
  6. GONAL-F [Concomitant]
     Indication: IN VITRO FERTILISATION
     Dosage: 300 (UNDER 1000 UNIT), QD
     Route: 058
     Dates: start: 20100605, end: 20100615
  7. MENOTROPINS [Concomitant]
     Indication: IN VITRO FERTILISATION
     Dosage: 75 (UNDER 1000 UNIT), QD
     Route: 030
     Dates: start: 20100610, end: 20100612
  8. GONADOTROPIN, CHORIONIC [Concomitant]
     Indication: IN VITRO FERTILISATION
     Dosage: 50 (UNDER 1000 UNIT), QD
     Route: 030
     Dates: start: 20100613, end: 20100615

REACTIONS (2)
  - Abortion [Recovered/Resolved]
  - Exposure during pregnancy [Recovered/Resolved]
